FAERS Safety Report 15375753 (Version 2)
Quarter: 2019Q4

REPORT INFORMATION
  Report Type: Spontaneous
  Country: IT (occurrence: IT)
  Receive Date: 20180912
  Receipt Date: 20191024
  Transmission Date: 20200122
  Serious: Yes (Other)
  Sender: FDA-Public Use
  Company Number: IT-PFIZER INC-2013073390

PATIENT
  Age: 39 Year
  Sex: Female

DRUGS (5)
  1. SELEPARINA [Concomitant]
     Active Substance: NADROPARIN CALCIUM
     Dosage: 2850 IU, 1X/DAY
     Route: 057
  2. TACHIPIRINA [Concomitant]
     Active Substance: ACETAMINOPHEN
     Dosage: 1000 MG, 1X/DAY
     Route: 042
  3. PIPERACILLIN/TAZOBACTAM [Suspect]
     Active Substance: PIPERACILLIN SODIUM\TAZOBACTAM SODIUM
     Indication: HYPERPYREXIA
     Dosage: 2.25 G, 1X/DAY
     Route: 042
     Dates: start: 20130211, end: 20130211
  4. BB-K8 [Concomitant]
     Active Substance: AMIKACIN SULFATE
     Dosage: 200 MG, 1X/DAY
     Route: 030
  5. OMEPRAZOLE. [Concomitant]
     Active Substance: OMEPRAZOLE
     Dosage: 40 MG, 1X/DAY
     Route: 048

REACTIONS (5)
  - Bronchostenosis [Recovered/Resolved]
  - Cough [Recovered/Resolved]
  - Hypersensitivity [Recovered/Resolved]
  - Urticaria [Recovered/Resolved]
  - Paraesthesia oral [Recovered/Resolved]

NARRATIVE: CASE EVENT DATE: 20130211
